FAERS Safety Report 9369169 (Version 2)
Quarter: 2014Q4

REPORT INFORMATION
  Report Type: Report from Study
  Country: NL (occurrence: NL)
  Receive Date: 20130626
  Receipt Date: 20141104
  Transmission Date: 20150529
  Serious: Yes (Death)
  Sender: FDA-Public Use
  Company Number: PHHY2013NL065423

PATIENT
  Sex: Female

DRUGS (1)
  1. ZOMETA [Suspect]
     Active Substance: ZOLEDRONIC ACID
     Indication: BREAST CANCER METASTATIC
     Dosage: 4 MG/ 100 ML ONCE EVERY 4 WEEKS
     Route: 042

REACTIONS (5)
  - Ileus [Fatal]
  - Metastasis [Fatal]
  - Second primary malignancy [Fatal]
  - Intestinal obstruction [Fatal]
  - Colon cancer [Fatal]
